FAERS Safety Report 25028929 (Version 1)
Quarter: 2025Q1

REPORT INFORMATION
  Report Type: Spontaneous
  Country: US (occurrence: US)
  Receive Date: 20250302
  Receipt Date: 20250302
  Transmission Date: 20250409
  Serious: No
  Sender: ABBVIE
  Company Number: US-ABBVIE-6156663

PATIENT
  Age: 82 Year
  Sex: Female

DRUGS (2)
  1. BOTOX [Suspect]
     Active Substance: ONABOTULINUMTOXINA
     Indication: Product used for unknown indication
     Route: 065
     Dates: start: 202404, end: 202404
  2. XEOMIN [Suspect]
     Active Substance: INCOBOTULINUMTOXINA
     Indication: Skin wrinkling
     Route: 065
     Dates: start: 20241226, end: 20241226

REACTIONS (8)
  - Periorbital swelling [Recovered/Resolved]
  - Drug ineffective [Not Recovered/Not Resolved]
  - Skin wrinkling [Not Recovered/Not Resolved]
  - Skin discolouration [Not Recovered/Not Resolved]
  - Eye contusion [Recovered/Resolved]
  - Skin discolouration [Not Recovered/Not Resolved]
  - Contusion [Recovered/Resolved]
  - Lid sulcus deepened [Not Recovered/Not Resolved]

NARRATIVE: CASE EVENT DATE: 20241201
